FAERS Safety Report 5062405-8 (Version None)
Quarter: 2006Q3

REPORT INFORMATION
  Report Type: 
  Country: None (occurrence: None)
  Receive Date: 20060703
  Receipt Date: 20051220
  Transmission Date: 20061208
  Serious: No
  Sender: FDA-Public Use
  Company Number: 2005S1012197

PATIENT
  Age: 56 Year
  Sex: Female

DRUGS (8)
  1. CLOZAPINE [Suspect]
     Indication: SCHIZOPHRENIA
     Dosage: SEE IMAGE
     Route: 048
     Dates: start: 20020218
  2. CLOZAPINE [Suspect]
     Indication: SCHIZOPHRENIA
     Dosage: SEE IMAGE
     Route: 048
     Dates: start: 20020218
  3. ACETAMINOPHEN [Concomitant]
  4. ALBUTEROL SPIROS [Concomitant]
  5. VALPROATE SODIUM [Concomitant]
  6. HALOPERIDOL [Concomitant]
  7. EZETIMIBE [Concomitant]
  8. SIMVASTATIN [Concomitant]

REACTIONS (1)
  - GRANULOCYTOPENIA [None]
